FAERS Safety Report 15540946 (Version 1)
Quarter: 2018Q4

REPORT INFORMATION
  Report Type: Report from Study
  Country: US (occurrence: US)
  Receive Date: 20181023
  Receipt Date: 20181023
  Transmission Date: 20190205
  Serious: Yes (Hospitalization)
  Sender: FDA-Public Use
  Company Number: US-MYLANLABS-2018M1077322

PATIENT
  Sex: Female

DRUGS (4)
  1. CARBOPLATIN. [Suspect]
     Active Substance: CARBOPLATIN
     Indication: INFLAMMATORY CARCINOMA OF THE BREAST
     Dosage: IV PIGGYBACK AT A DOSE OF 2.0 AREA UNDER THE CONCENTRATION TIME CURVE
     Route: 042
  2. PANITUMUMAB [Suspect]
     Active Substance: PANITUMUMAB
     Route: 042
  3. PANITUMUMAB [Suspect]
     Active Substance: PANITUMUMAB
     Indication: INFLAMMATORY CARCINOMA OF THE BREAST
     Dosage: ON DAY 1
     Route: 042
  4. PACLITAXEL. [Suspect]
     Active Substance: PACLITAXEL
     Indication: INFLAMMATORY CARCINOMA OF THE BREAST
     Dosage: IV PIGGYBACK AT 5 MG/ML
     Route: 042

REACTIONS (1)
  - Pyrexia [Unknown]
